FAERS Safety Report 8802732 (Version 3)
Quarter: 2013Q1

REPORT INFORMATION
  Report Type: Spontaneous
  Country: US (occurrence: US)
  Receive Date: 20120921
  Receipt Date: 20130221
  Transmission Date: 20140127
  Serious: Yes (Hospitalization, Disabling, Other)
  Sender: FDA-Public Use
  Company Number: US-009507513-1201USA00882

PATIENT
  Sex: Female
  Weight: 96.74 kg

DRUGS (17)
  1. FOSAMAX [Suspect]
     Dosage: UNK
     Route: 048
     Dates: start: 20040818
  2. FOSAMAX [Suspect]
     Indication: OSTEOPOROSIS
     Dosage: 70 MG, QW
     Route: 048
     Dates: start: 2003, end: 2008
  3. FOSAMAX PLUS D [Suspect]
     Dosage: UNK
     Route: 048
     Dates: start: 20060216, end: 20080211
  4. PREDNISONE [Concomitant]
     Indication: COUGH
     Dosage: 2.5-60 MG, QD
     Dates: start: 1994
  5. PREDNISONE [Concomitant]
     Indication: SARCOIDOSIS
  6. METHOTREXATE [Concomitant]
     Indication: SARCOIDOSIS
     Dosage: 7.5 MG, QW (SUNDAY)
     Dates: start: 20000517
  7. FOLIC ACID [Concomitant]
     Indication: SARCOIDOSIS
     Dosage: 1 MG,Q M-F
     Dates: start: 20000517
  8. PLAQUENIL [Concomitant]
     Indication: MALAISE
     Dosage: UNK
     Dates: start: 20020122
  9. PLAQUENIL [Concomitant]
     Indication: FATIGUE
  10. CALCIUM (UNSPECIFIED) [Concomitant]
     Indication: OSTEOPOROSIS
     Dosage: 315-1500 MG, QD
  11. VITAMIN D (UNSPECIFIED) [Concomitant]
     Indication: OSTEOPOROSIS
     Dosage: 250 IU, UNK
  12. VITAMINS (UNSPECIFIED) [Concomitant]
     Indication: OSTEOPOROSIS
  13. FERROUS SULFATE [Concomitant]
     Indication: IRON DEFICIENCY ANAEMIA
     Dosage: 325 MG, BID
  14. CELEXA [Concomitant]
     Indication: DEPRESSION
     Dosage: 20 MG, QD
     Route: 048
  15. ELAVIL (MADE BY MERCK, MARKETED BY ZENECA) [Concomitant]
     Indication: DEPRESSION
     Dosage: 75 MG, QD
     Route: 048
  16. TRAZODONE HYDROCHLORIDE [Concomitant]
     Indication: DEPRESSION
     Dosage: 50 MG, QD
     Route: 048
     Dates: start: 20100511
  17. ERGOCALCIFEROL [Concomitant]
     Dosage: 50000 IU, QM
     Route: 048

REACTIONS (107)
  - Femur fracture [Unknown]
  - Closed fracture manipulation [Unknown]
  - Disability [Not Recovered/Not Resolved]
  - Iron deficiency [Unknown]
  - Periodontal operation [Unknown]
  - Bone trimming [Unknown]
  - Iron deficiency anaemia [Not Recovered/Not Resolved]
  - Transfusion reaction [Unknown]
  - Breast reconstruction [Unknown]
  - Tonsillectomy [Unknown]
  - Adenoidectomy [Unknown]
  - Meniscus operation [Unknown]
  - Iron deficiency anaemia [Unknown]
  - Depression [Unknown]
  - Appendicectomy [Unknown]
  - Iron deficiency anaemia [Unknown]
  - Bunion operation [Unknown]
  - Chest pain [Recovered/Resolved]
  - Ureteral stent insertion [Unknown]
  - Calculus ureteric [Unknown]
  - Cardiac failure congestive [Unknown]
  - Ureteral stent removal [Unknown]
  - Viral upper respiratory tract infection [Unknown]
  - Packed red blood cell transfusion [Unknown]
  - Depression [Unknown]
  - Low turnover osteopathy [Unknown]
  - Incorrect dose administered [Unknown]
  - Gingivectomy [Unknown]
  - Debridement [Unknown]
  - Productive cough [Unknown]
  - Pneumonia [Unknown]
  - Upper respiratory tract infection [Unknown]
  - Tuberculosis [Unknown]
  - Sarcoidosis [Unknown]
  - Sinusitis [Unknown]
  - Atelectasis [Unknown]
  - Aortic disorder [Unknown]
  - Lung disorder [Unknown]
  - Candida infection [Unknown]
  - Sarcoidosis [Unknown]
  - Sarcoidosis [Unknown]
  - Atypical pneumonia [Unknown]
  - Sinusitis [Unknown]
  - Interstitial lung disease [Unknown]
  - Weight increased [Unknown]
  - Ventricular extrasystoles [Unknown]
  - Left atrial dilatation [Unknown]
  - Mitral valve incompetence [Unknown]
  - Tricuspid valve incompetence [Unknown]
  - Myopathy [Unknown]
  - Fibromyalgia [Unknown]
  - Stress [Unknown]
  - Osteoarthritis [Unknown]
  - Meniscus injury [Unknown]
  - Blood glucose increased [Unknown]
  - Tachycardia [Unknown]
  - Joint injection [Unknown]
  - Treatment noncompliance [Unknown]
  - Nephrolithiasis [Unknown]
  - Anxiety [Unknown]
  - Epistaxis [Unknown]
  - Bronchiectasis [Not Recovered/Not Resolved]
  - Arteriovenous malformation [Unknown]
  - Atelectasis [Unknown]
  - Mitral valve calcification [Unknown]
  - Myocardial ischaemia [Unknown]
  - Inferior vena cava dilatation [Unknown]
  - Diastolic dysfunction [Unknown]
  - Electrocardiogram ST segment abnormal [Unknown]
  - Chronic gastrointestinal bleeding [Unknown]
  - Hereditary haemorrhagic telangiectasia [Unknown]
  - Antibody test positive [Unknown]
  - Weight increased [Unknown]
  - Insomnia [Unknown]
  - Phlebolith [Unknown]
  - Epistaxis [Recovered/Resolved]
  - Arteriovenous malformation [Unknown]
  - Epistaxis [Not Recovered/Not Resolved]
  - Telangiectasia [Unknown]
  - Arteriovenous malformation [Unknown]
  - Gastroenteritis [Unknown]
  - Hypokalaemia [Unknown]
  - Presbyopia [Unknown]
  - Urine analysis abnormal [Unknown]
  - Ligament sprain [Unknown]
  - Pneumonia [Unknown]
  - Myositis [Unknown]
  - Fibromyalgia [Unknown]
  - Cough [Unknown]
  - Acrochordon [Unknown]
  - Aspiration [Not Recovered/Not Resolved]
  - Pulmonary arterial hypertension [Unknown]
  - Malformation venous [Unknown]
  - Cataract [Unknown]
  - Drug intolerance [Unknown]
  - Pernicious anaemia [Unknown]
  - Asthenia [Unknown]
  - Gastrooesophageal reflux disease [Unknown]
  - Gastrooesophageal reflux disease [Unknown]
  - Arthralgia [Unknown]
  - Nausea [Recovered/Resolved]
  - Vomiting [Recovered/Resolved]
  - Diarrhoea [Recovered/Resolved]
  - Melaena [Not Recovered/Not Resolved]
  - Melaena [Unknown]
  - Musculoskeletal pain [Unknown]
  - Oedema peripheral [Unknown]
